FAERS Safety Report 10792243 (Version 1)
Quarter: 2015Q1

REPORT INFORMATION
  Report Type: Spontaneous
  Country: US (occurrence: US)
  Receive Date: 20150213
  Receipt Date: 20150213
  Transmission Date: 20150721
  Serious: No
  Sender: FDA-Public Use
  Company Number: US-GLAXOSMITHKLINE-A1077636A

PATIENT

DRUGS (2)
  1. HERBAL MEDICATION [Concomitant]
     Active Substance: HERBALS
     Indication: CONSTIPATION
  2. ALLI [Suspect]
     Active Substance: ORLISTAT
     Indication: WEIGHT DECREASED
     Dates: end: 20140616

REACTIONS (5)
  - Hepatic enzyme increased [Not Recovered/Not Resolved]
  - Drug administration error [Unknown]
  - Diarrhoea [Unknown]
  - Treatment noncompliance [Unknown]
  - Steatorrhoea [Unknown]

NARRATIVE: CASE EVENT DATE: 20140617
